FAERS Safety Report 17709285 (Version 1)
Quarter: 2020Q2

REPORT INFORMATION
  Report Type: Spontaneous
  Country: CA (occurrence: CA)
  Receive Date: 20200426
  Receipt Date: 20200426
  Transmission Date: 20200714
  Serious: Yes (Life-Threatening, Hospitalization)
  Sender: FDA-Public Use
  Company Number: CA-BAXTER-2020BAX008525

PATIENT
  Age: 81 Year
  Sex: Female

DRUGS (5)
  1. LIDOCAINE HCL 0.4% AND DEXTROSE 5% INJ [Suspect]
     Active Substance: DEXTROSE\LIDOCAINE HYDROCHLORIDE
     Indication: NEUROMUSCULAR BLOCKADE
     Route: 065
  2. GLYCOPYRRONIUM BROMIDE [Suspect]
     Active Substance: GLYCOPYRRONIUM
     Indication: ENDOTRACHEAL INTUBATION
     Route: 042
  3. LIDOCAINE. [Suspect]
     Active Substance: LIDOCAINE
     Indication: NEUROMUSCULAR BLOCKADE
     Dosage: OINTMENT TOPICAL
     Route: 061
  4. MIDAZOLAM. [Suspect]
     Active Substance: MIDAZOLAM
     Indication: ENDOTRACHEAL INTUBATION
     Route: 042
  5. LIDOCAINE HCL 0.4% AND DEXTROSE 5% INJ [Suspect]
     Active Substance: DEXTROSE\LIDOCAINE HYDROCHLORIDE
     Indication: OFF LABEL USE
     Route: 065

REACTIONS (5)
  - Pulse absent [Unknown]
  - Upper airway obstruction [Unknown]
  - Hypotension [Unknown]
  - Bradycardia [Unknown]
  - Tachycardia [Unknown]
